FAERS Safety Report 4361415-3 (Version None)
Quarter: 2004Q2

REPORT INFORMATION
  Report Type: 
  Country: None (occurrence: None)
  Receive Date: 20040519
  Receipt Date: 20040519
  Transmission Date: 20050107
  Serious: No
  Sender: FDA-Public Use
  Company Number: None

PATIENT
  Age: 38 Year
  Sex: Female
  Weight: 63.5036 kg

DRUGS (4)
  1. DOCTORS CHOICE ADVANCED WOUND CARE BURNS, SCALDS, AND ABRASIONS [Suspect]
     Indication: BLISTER
     Dosage: USED ONE PATCH THEN APPLIED OTHER MEDICATION
     Route: 061
     Dates: start: 20040503
  2. DOCTORS CHOICE ADVANCED WOUND CARE BURNS, SCALDS, AND ABRASIONS [Suspect]
     Indication: BURNS SECOND DEGREE
     Dosage: USED ONE PATCH THEN APPLIED OTHER MEDICATION
     Route: 061
     Dates: start: 20040503
  3. DOCTORS CHOICE ADVANCED WOUND CARE BURNS, SCALDS, AND ABRASIONS [Suspect]
     Indication: BLISTER
     Dosage: USED ONE PATCH THEN APPLIED OTHER MEDICATION
     Route: 061
     Dates: start: 20040506
  4. DOCTORS CHOICE ADVANCED WOUND CARE BURNS, SCALDS, AND ABRASIONS [Suspect]
     Indication: BURNS SECOND DEGREE
     Dosage: USED ONE PATCH THEN APPLIED OTHER MEDICATION
     Route: 061
     Dates: start: 20040506

REACTIONS (5)
  - APPLICATION SITE EXCORIATION [None]
  - APPLICATION SITE PAIN [None]
  - MEDICATION ERROR [None]
  - PHARMACEUTICAL PRODUCT COMPLAINT [None]
  - SCAR [None]
